FAERS Safety Report 20813963 (Version 1)
Quarter: 2022Q2

REPORT INFORMATION
  Report Type: Spontaneous
  Country: US (occurrence: None)
  Receive Date: 20220510
  Receipt Date: 20220510
  Transmission Date: 20220720
  Serious: Yes (Other)
  Sender: FDA-Public Use
  Company Number: None

PATIENT
  Age: 49 Year
  Sex: Female
  Weight: 72 kg

DRUGS (8)
  1. VENOFER [Suspect]
     Active Substance: IRON SUCROSE
     Indication: Anaemia
     Dosage: OTHER QUANTITY : 1 NONE;?OTHER FREQUENCY : NONE;?
     Route: 042
     Dates: start: 20220419, end: 20220425
  2. LEVOTHYROXINE [Concomitant]
     Active Substance: LEVOTHYROXINE
  3. TRAZODONE [Concomitant]
     Active Substance: TRAZODONE HYDROCHLORIDE
  4. BACLOFEN [Concomitant]
     Active Substance: BACLOFEN
  5. ZOLOFT [Concomitant]
     Active Substance: SERTRALINE HYDROCHLORIDE
  6. VITAMINS [Concomitant]
     Active Substance: VITAMINS
  7. ALLEGRA [Concomitant]
     Active Substance: FEXOFENADINE HYDROCHLORIDE
  8. CIMETIDINE [Concomitant]
     Active Substance: CIMETIDINE

REACTIONS (13)
  - Dizziness [None]
  - Back pain [None]
  - Abdominal distension [None]
  - Swelling [None]
  - Weight increased [None]
  - Neuropathy peripheral [None]
  - Muscular weakness [None]
  - Arthralgia [None]
  - Taste disorder [None]
  - Fluid retention [None]
  - Palpitations [None]
  - Blood pressure increased [None]
  - Gait disturbance [None]

NARRATIVE: CASE EVENT DATE: 20220425
